FAERS Safety Report 9890930 (Version 1)
Quarter: 2014Q1

REPORT INFORMATION
  Report Type: Spontaneous
  Country: US (occurrence: None)
  Receive Date: 20140207
  Receipt Date: 20140207
  Transmission Date: 20141002
  Serious: Yes (Death)
  Sender: FDA-Public Use
  Company Number: SYM-2014-15575

PATIENT
  Age: 26 Year
  Sex: Male

DRUGS (3)
  1. DILTIAZEM (DILTIAZEM) (DILTIAZEM) [Suspect]
     Indication: PRODUCT USED FOR UNKNOWN INDICATION
     Dosage: PARENTAL  UNKNOWN - UNKNOWN  THERAPY DATES
     Route: 051
  2. HEROIN (DIAMORPHINE) (DIAMORPHINE) [Suspect]
     Indication: PRODUCT USED FOR UNKNOWN INDICATION
     Dosage: PARENTERAL  UNKNOWN - UNKNOWN THERAPY DATES
     Route: 051
  3. CODEINE (CODEINE) (CODEINE) [Suspect]
     Indication: PRODUCT USED FOR UNKNOWN INDICATION
     Dosage: PARENTERAL  UNKNOWN-UNKNOWN THERAPY DATES UNKNOWN
     Route: 051

REACTIONS (2)
  - Drug abuse [None]
  - Toxicity to various agents [None]
